FAERS Safety Report 7212330-9 (Version None)
Quarter: 2010Q4

REPORT INFORMATION
  Report Type: 
  Country: None (occurrence: None)
  Receive Date: 20101229
  Receipt Date: 20101219
  Transmission Date: 20110411
  Serious: Yes (Other)
  Sender: FDA-Public Use
  Company Number: 021154

PATIENT
  Sex: Female
  Weight: 36 kg

DRUGS (7)
  1. VIMPAT [Suspect]
     Indication: EPILEPSY
     Dosage: (150 MG, ENTERAL (GASTROSTOMY))
     Dates: start: 20100507, end: 20100101
  2. LERGIGAN /00033002/ [Concomitant]
  3. MNESIS [Concomitant]
  4. BIOTIN [Concomitant]
  5. BENERVA [Concomitant]
  6. PARACETAMOL [Concomitant]
  7. MOVICOL /01749801/ [Concomitant]

REACTIONS (2)
  - CLONUS [None]
  - DYSTONIA [None]
